FAERS Safety Report 8322833-1 (Version None)
Quarter: 2012Q2

REPORT INFORMATION
  Report Type: 
  Country: None (occurrence: None)
  Receive Date: 20120430
  Receipt Date: 20120419
  Transmission Date: 20120825
  Serious: Yes (Other)
  Sender: FDA-Public Use
  Company Number: CA-ROCHE-545305

PATIENT
  Sex: Female

DRUGS (2)
  1. ACCUTANE [Suspect]
     Indication: ACNE
     Dosage: LATE 1980'S TO EARLY 1990'S
     Route: 048
  2. ACCUTANE [Suspect]

REACTIONS (3)
  - IRRITABLE BOWEL SYNDROME [None]
  - DEPRESSION [None]
  - ANXIETY [None]
